FAERS Safety Report 21983106 (Version 2)
Quarter: 2023Q1

REPORT INFORMATION
  Report Type: Spontaneous
  Country: US (occurrence: US)
  Receive Date: 20230213
  Receipt Date: 20230322
  Transmission Date: 20230418
  Serious: No
  Sender: FDA-Public Use
  Company Number: US-BRISTOL-MYERS SQUIBB COMPANY-2023-020374

PATIENT
  Age: 74 Year
  Sex: Female

DRUGS (1)
  1. POMALYST [Suspect]
     Active Substance: POMALIDOMIDE
     Indication: Plasma cell myeloma
     Dosage: FREQ: TAKE 1 CAPSULE BY MOUTH DAILY FOR 21 DAYS FOLLOWED BY 7 ?DAYS OFF
     Route: 048
     Dates: start: 20180817, end: 202302

REACTIONS (2)
  - Dyspnoea [Recovered/Resolved]
  - Laboratory test abnormal [Unknown]
